FAERS Safety Report 4767872-2 (Version None)
Quarter: 2005Q3

REPORT INFORMATION
  Report Type: 
  Country: None (occurrence: None)
  Receive Date: 20050912
  Receipt Date: 20050902
  Transmission Date: 20060218
  Serious: Yes (Hospitalization, Other)
  Sender: FDA-Public Use
  Company Number: KII-2005-0018471

PATIENT
  Age: 46 Year
  Sex: Female

DRUGS (9)
  1. OXYCONTIN [Suspect]
     Dosage: ORAL
     Route: 048
  2. ACETAMINOPHEN [Suspect]
     Dosage: ORAL
     Route: 048
  3. ANTIEPILEPTICS [Suspect]
     Dosage: ORAL
     Route: 048
  4. BENZODIAZEPINE DERIVATIVES [Suspect]
     Dosage: ORAL
     Route: 048
  5. BETA BLOCKING AGENTS [Suspect]
     Dosage: ORAL
     Route: 048
  6. SSRI [Suspect]
     Dosage: ORAL
     Route: 048
  7. FENTANYL [Suspect]
     Dosage: TRANSDERMAL
     Route: 062
  8. BUTALBITAL [Suspect]
     Dosage: ORAL
     Route: 048
  9. MUSCLE RELAXANTS [Suspect]
     Dosage: ORAL
     Route: 048

REACTIONS (3)
  - COMA [None]
  - DRUG SCREEN POSITIVE [None]
  - SOMNOLENCE [None]
